FAERS Safety Report 11459543 (Version 1)
Quarter: 2015Q3

REPORT INFORMATION
  Report Type: Spontaneous
  Country: US (occurrence: US)
  Receive Date: 20150904
  Receipt Date: 20150904
  Transmission Date: 20151125
  Serious: No
  Sender: FDA-Public Use
  Company Number: US-TARO-2015TAR00107

PATIENT
  Sex: Male
  Weight: 95.24 kg

DRUGS (3)
  1. UNSPECIFIED ANTIBIOTICS (3) [Concomitant]
     Dosage: UNK
     Dates: start: 2014
  2. WARFARIN SODIUM TABLETS USP 7.5MG [Suspect]
     Active Substance: WARFARIN SODIUM
     Dosage: 3.75 MG, 1X/DAY
     Dates: start: 20150131
  3. WARFARIN SODIUM TABLETS USP 7.5MG [Suspect]
     Active Substance: WARFARIN SODIUM
     Indication: PULMONARY EMBOLISM
     Dosage: 7.5 MG, 1X/DAY
     Route: 048
     Dates: start: 2011, end: 20150129

REACTIONS (4)
  - Haemoptysis [Recovered/Resolved]
  - International normalised ratio fluctuation [Recovering/Resolving]
  - Food interaction [Recovered/Resolved]
  - International normalised ratio increased [Recovering/Resolving]

NARRATIVE: CASE EVENT DATE: 2014
